FAERS Safety Report 7768295-4 (Version None)
Quarter: 2011Q3

REPORT INFORMATION
  Report Type: 
  Country: None (occurrence: None)
  Receive Date: 20110922
  Receipt Date: 20110223
  Transmission Date: 20111222
  Serious: No
  Sender: FDA-Public Use
  Company Number: US-ASTRAZENECA-2011SE10183

PATIENT
  Age: 36 Year
  Sex: Female
  Weight: 61.2 kg

DRUGS (1)
  1. SEROQUEL [Suspect]
     Indication: BIPOLAR DISORDER
     Dosage: 1 IN AM AND 2-3 PM, DAILY 50 MG
     Route: 048

REACTIONS (3)
  - FEELING ABNORMAL [None]
  - ABDOMINAL DISCOMFORT [None]
  - DRUG DOSE OMISSION [None]
